FAERS Safety Report 9136685 (Version 1)
Quarter: 2013Q1

REPORT INFORMATION
  Report Type: Spontaneous
  Country: GB (occurrence: GB)
  Receive Date: 20130304
  Receipt Date: 20130304
  Transmission Date: 20140127
  Serious: Yes (Other)
  Sender: FDA-Public Use
  Company Number: GB-TEVA-388090ISR

PATIENT
  Age: 74 Year
  Sex: Male
  Weight: 76.2 kg

DRUGS (3)
  1. SIMVASTATIN [Suspect]
  2. CALCEOS [Suspect]
     Indication: BODY HEIGHT DECREASED
     Dosage: EACH TABLET CONTAINS 1250MG CALCIUMCARBONATE + 10MCG COLECALCIFEROL + OTHER INGREDIENTS
     Route: 048
     Dates: start: 2012
  3. FYBOGEL [Concomitant]

REACTIONS (7)
  - Furuncle [Not Recovered/Not Resolved]
  - Inflammation [Not Recovered/Not Resolved]
  - Pain in extremity [Unknown]
  - Rash pustular [Unknown]
  - Carbuncle [Not Recovered/Not Resolved]
  - Local swelling [Unknown]
  - Localised infection [Not Recovered/Not Resolved]
